FAERS Safety Report 9274549 (Version 1)
Quarter: 2013Q2

REPORT INFORMATION
  Report Type: Spontaneous
  Country: HK (occurrence: HK)
  Receive Date: 20130507
  Receipt Date: 20130521
  Transmission Date: 20140414
  Serious: Yes (Other)
  Sender: FDA-Public Use
  Company Number: HK-ROCHE-1221058

PATIENT
  Sex: Male

DRUGS (4)
  1. MIRCERA [Suspect]
     Indication: NEPHROGENIC ANAEMIA
     Route: 058
     Dates: start: 20130420
  2. ERYTHROPOIETIN BETA [Suspect]
     Indication: NEPHROGENIC ANAEMIA
     Route: 058
     Dates: start: 20080624, end: 20130318
  3. ERYTHROPOIETIN BETA [Suspect]
     Route: 058
     Dates: start: 20130318, end: 20130409
  4. ERYTHROPOIETIN BETA [Suspect]
     Route: 058
     Dates: start: 20130409, end: 20130420

REACTIONS (2)
  - Aplasia pure red cell [Unknown]
  - Haemoglobin decreased [Unknown]
